FAERS Safety Report 10231592 (Version 1)
Quarter: 2014Q2

REPORT INFORMATION
  Report Type: Report from Study
  Country: GB (occurrence: GB)
  Receive Date: 20140611
  Receipt Date: 20140611
  Transmission Date: 20141212
  Serious: Yes (Other)
  Sender: FDA-Public Use
  Company Number: ALCN2014GB003345

PATIENT
  Age: 78 Year
  Sex: Male

DRUGS (1)
  1. DEXAMETHASONE [Suspect]
     Dosage: UNK
     Route: 047

REACTIONS (2)
  - Corneal epithelium defect [Recovered/Resolved]
  - Intraocular pressure increased [Recovered/Resolved]
